FAERS Safety Report 9997834 (Version 1)
Quarter: 2014Q1

REPORT INFORMATION
  Report Type: Spontaneous
  Country: US (occurrence: None)
  Receive Date: 20140304
  Receipt Date: 20140304
  Transmission Date: 20141002
  Serious: Yes (Hospitalization, Other)
  Sender: FDA-Public Use
  Company Number: RB-51174-2013

PATIENT
  Age: 37 Year
  Sex: Male

DRUGS (1)
  1. SUBUTEX [Suspect]
     Indication: PRODUCT USED FOR UNKNOWN INDICATION
     Dosage: DOSING DETAILS UNKNOWN

REACTIONS (6)
  - Wrong technique in drug usage process [None]
  - Hallucination [None]
  - Paranoia [None]
  - Asthenia [None]
  - Amnesia [None]
  - Staphylococcal infection [None]
